FAERS Safety Report 14244656 (Version 5)
Quarter: 2018Q1

REPORT INFORMATION
  Report Type: Report from Study
  Country: DE (occurrence: DE)
  Receive Date: 20171201
  Receipt Date: 20180206
  Transmission Date: 20180508
  Serious: Yes (Hospitalization)
  Sender: FDA-Public Use
  Company Number: PHHO2017DE016346

PATIENT
  Age: 66 Year
  Sex: Male
  Weight: 84 kg

DRUGS (23)
  1. BLINDED PDR001 [Suspect]
     Active Substance: INVESTIGATIONAL PRODUCT
     Dosage: CODE NOT BROKEN
     Route: 042
     Dates: start: 20171106
  2. BLINDED PDR001 [Suspect]
     Active Substance: INVESTIGATIONAL PRODUCT
     Indication: MALIGNANT MELANOMA
     Dosage: CODE NOT BROKEN
     Route: 042
     Dates: start: 20171030, end: 20171030
  3. BLINDED PDR001 [Suspect]
     Active Substance: INVESTIGATIONAL PRODUCT
     Dosage: CODE NOT BROKEN
     Route: 042
     Dates: start: 20171106
  4. TRAMETINIB [Suspect]
     Active Substance: TRAMETINIB
     Indication: MALIGNANT MELANOMA
     Dosage: 2 MG, QD
     Route: 048
     Dates: start: 20171009, end: 20171015
  5. BLINDED NO TREATMENT RECEIVED [Suspect]
     Active Substance: INVESTIGATIONAL PRODUCT
     Indication: MALIGNANT MELANOMA
     Dosage: CODE NOT BROKEN
     Route: 042
     Dates: start: 20171030, end: 20171030
  6. BLINDED NO TREATMENT RECEIVED [Suspect]
     Active Substance: INVESTIGATIONAL PRODUCT
     Dosage: CODE NOT BROKEN
     Route: 042
     Dates: start: 20171106
  7. DABRAFENIB [Suspect]
     Active Substance: DABRAFENIB
     Dosage: 150 MG, BID
     Route: 048
     Dates: start: 20171030, end: 20171105
  8. TRAMETINIB [Suspect]
     Active Substance: TRAMETINIB
     Dosage: 2 MG, QD
     Route: 048
     Dates: start: 20171030, end: 20171105
  9. PERFALGAN [Concomitant]
     Active Substance: ACETAMINOPHEN
     Indication: PRODUCT USED FOR UNKNOWN INDICATION
     Route: 065
  10. PANTOPRAZOLE [Concomitant]
     Active Substance: PANTOPRAZOLE
     Indication: PRODUCT USED FOR UNKNOWN INDICATION
     Route: 065
  11. DABRAFENIB [Suspect]
     Active Substance: DABRAFENIB
     Dosage: 150 MG, BID
     Route: 048
     Dates: start: 20171129, end: 20171129
  12. TRAMETINIB [Suspect]
     Active Substance: TRAMETINIB
     Dosage: 2 MG, QD
     Route: 048
     Dates: start: 20171129, end: 20171129
  13. PDR001 [Suspect]
     Active Substance: INVESTIGATIONAL PRODUCT
     Indication: MALIGNANT MELANOMA
     Dosage: 400 MG, QW4
     Route: 042
     Dates: start: 20171009, end: 20171015
  14. BLINDED PLACEBO [Suspect]
     Active Substance: INVESTIGATIONAL PRODUCT
     Indication: MALIGNANT MELANOMA
     Dosage: CODE NOT BROKEN
     Route: 042
     Dates: start: 20171030, end: 20171030
  15. BLINDED DABRAFENIB [Suspect]
     Active Substance: DABRAFENIB
     Indication: MALIGNANT MELANOMA
     Dosage: CODE NOT BROKEN
     Route: 042
     Dates: start: 20171030, end: 20171030
  16. BLINDED PDR001 [Suspect]
     Active Substance: INVESTIGATIONAL PRODUCT
     Indication: MALIGNANT MELANOMA
     Dosage: CODE NOT BROKEN
     Route: 042
     Dates: start: 20171030, end: 20171030
  17. BLINDED TRAMETINIB [Suspect]
     Active Substance: TRAMETINIB
     Indication: MALIGNANT MELANOMA
     Dosage: CODE NOT BROKEN
     Route: 042
     Dates: start: 20171030, end: 20171030
  18. BLINDED TRAMETINIB [Suspect]
     Active Substance: TRAMETINIB
     Dosage: CODE NOT BROKEN
     Route: 042
     Dates: start: 20171106
  19. DABRAFENIB [Suspect]
     Active Substance: DABRAFENIB
     Indication: MALIGNANT MELANOMA
     Dosage: 150 MG, BID
     Route: 048
     Dates: start: 20171009, end: 20171015
  20. IDEOS [Concomitant]
     Active Substance: CALCIUM CARBONATE\CHOLECALCIFEROL
     Indication: PRODUCT USED FOR UNKNOWN INDICATION
     Route: 065
  21. BLINDED DABRAFENIB [Suspect]
     Active Substance: DABRAFENIB
     Dosage: CODE NOT BROKEN
     Route: 042
     Dates: start: 20171106
  22. BLINDED PLACEBO [Suspect]
     Active Substance: INVESTIGATIONAL PRODUCT
     Dosage: CODE NOT BROKEN
     Route: 042
     Dates: start: 20171106
  23. URBASON [Concomitant]
     Active Substance: METHYLPREDNISOLONE
     Indication: PRODUCT USED FOR UNKNOWN INDICATION
     Route: 065

REACTIONS (1)
  - Pyrexia [Recovered/Resolved]

NARRATIVE: CASE EVENT DATE: 20171106
